FAERS Safety Report 5304217-3 (Version None)
Quarter: 2007Q2

REPORT INFORMATION
  Report Type: 
  Country: None (occurrence: None)
  Receive Date: 20070419
  Receipt Date: 20070419
  Transmission Date: 20071010
  Serious: Yes (Other)
  Sender: FDA-Public Use
  Company Number: None

PATIENT
  Age: 54 Year
  Sex: Female
  Weight: 113.3993 kg

DRUGS (1)
  1. ADVAIR DISKUS 100/50 [Suspect]
     Indication: ASTHMA
     Dosage: 1 DOSE  EVERY 12 HOURS   PO
     Route: 048
     Dates: start: 20070304, end: 20070305

REACTIONS (4)
  - PALPITATIONS [None]
  - PERIORBITAL OEDEMA [None]
  - RHINORRHOEA [None]
  - THROAT TIGHTNESS [None]
